FAERS Safety Report 7064665-0 (Version None)
Quarter: 2010Q4

REPORT INFORMATION
  Report Type: 
  Country: None (occurrence: None)
  Receive Date: 20101025
  Receipt Date: 20101025
  Transmission Date: 20110411
  Serious: Yes (Hospitalization, Disabling)
  Sender: FDA-Public Use
  Company Number: None

PATIENT
  Age: 52 Year
  Sex: Female
  Weight: 81.6475 kg

DRUGS (7)
  1. BACLOFEN [Suspect]
     Indication: MUSCLE SPASTICITY
     Dosage: 40 MG DAILY ORAL
     Route: 048
     Dates: start: 20100923
  2. PROZAC [Concomitant]
  3. PROVIGIL [Concomitant]
  4. MELATONIN [Concomitant]
  5. MAGNESIUM [Concomitant]
  6. D3 [Concomitant]
  7. LECITHIN [Concomitant]

REACTIONS (8)
  - DEHYDRATION [None]
  - DIZZINESS POSTURAL [None]
  - DYSPNOEA [None]
  - FALL [None]
  - NAUSEA [None]
  - PALLOR [None]
  - RETCHING [None]
  - URINE ANALYSIS ABNORMAL [None]
